FAERS Safety Report 7455771-7 (Version None)
Quarter: 2011Q2

REPORT INFORMATION
  Report Type: 
  Country: None (occurrence: None)
  Receive Date: 20110503
  Receipt Date: 20110421
  Transmission Date: 20111010
  Serious: Yes (Death)
  Sender: FDA-Public Use
  Company Number: DE-PFIZER INC-2011059556

PATIENT
  Age: 57 Year
  Sex: Male
  Weight: 93 kg

DRUGS (7)
  1. ETOPOSIDE [Suspect]
     Indication: ACUTE MYELOID LEUKAEMIA
     Dosage: 197 MG, UNK
     Route: 042
     Dates: start: 20110302, end: 20110304
  2. TRETINOIN [Suspect]
     Indication: ACUTE MYELOID LEUKAEMIA
     Route: 042
  3. VORICONAZOLE [Suspect]
     Dosage: 600 MG, 1X/DAY
     Route: 048
     Dates: start: 20110228
  4. IDARUBICIN [Suspect]
     Indication: ACUTE MYELOID LEUKAEMIA
     Dosage: 23.64 MG, UNK
     Route: 042
     Dates: start: 20110301, end: 20110304
  5. GEMTUZUMAB OZOGAMICIN [Suspect]
     Indication: ACUTE MYELOID LEUKAEMIA
     Dosage: 5.91 MG, UNK
     Route: 042
     Dates: start: 20110302, end: 20110302
  6. CYTARABINE [Suspect]
     Indication: ACUTE MYELOID LEUKAEMIA
     Dosage: 197 MG, UNK
     Route: 042
     Dates: start: 20110302, end: 20110308
  7. ANIDULAFUNGIN [Suspect]
     Dosage: 200 MG, UNK
     Route: 042
     Dates: start: 20110314

REACTIONS (2)
  - HEPATITIS TOXIC [None]
  - SEPSIS [None]
